FAERS Safety Report 19451690 (Version 1)
Quarter: 2021Q2

REPORT INFORMATION
  Report Type: Spontaneous
  Country: US (occurrence: US)
  Receive Date: 20210623
  Receipt Date: 20210623
  Transmission Date: 20210717
  Serious: Yes (Hospitalization, Other)
  Sender: FDA-Public Use
  Company Number: US-AMGEN-USASP2021092474

PATIENT
  Age: 28 Year
  Sex: Female

DRUGS (10)
  1. AMINOCAPROIC ACID. [Concomitant]
     Active Substance: AMINOCAPROIC ACID
     Dosage: 12.5 MILLIGRAM PER HOUR
  2. ISOFLURANE. [Concomitant]
     Active Substance: ISOFLURANE
     Dosage: UNK
  3. ROMIPLOSTIM [Suspect]
     Active Substance: ROMIPLOSTIM
     Indication: OFF LABEL USE
     Dosage: 10 MICROGRAM/KILOGRAM
     Route: 065
  4. ROMIPLOSTIM [Suspect]
     Active Substance: ROMIPLOSTIM
     Indication: THROMBOCYTOPENIA
     Dosage: 7 MICROGRAM/KILOGRAM
     Route: 065
  5. SUFENTANIL [Concomitant]
     Active Substance: SUFENTANIL
     Dosage: UNK
  6. ROCURONIUM [Concomitant]
     Active Substance: ROCURONIUM BROMIDE
     Dosage: UNK
  7. PROPOFOL. [Concomitant]
     Active Substance: PROPOFOL
     Dosage: UNK
  8. PROTAMINE [Concomitant]
     Active Substance: PROTAMINE
     Dosage: 200 MILLIGRAM
  9. DDAVP [Concomitant]
     Active Substance: DESMOPRESSIN ACETATE
     Dosage: 20 MICROGRAM (0.3 UG/KG)
  10. MIDAZOLAM. [Concomitant]
     Active Substance: MIDAZOLAM
     Dosage: UNK

REACTIONS (4)
  - Catheter site haematoma [Unknown]
  - Pericardial effusion [Unknown]
  - Mediastinal effusion [Unknown]
  - Off label use [Unknown]
